FAERS Safety Report 7269586-6 (Version None)
Quarter: 2011Q1

REPORT INFORMATION
  Report Type: 
  Country: None (occurrence: None)
  Receive Date: 20110202
  Receipt Date: 20101215
  Transmission Date: 20110831
  Serious: Yes (Hospitalization, Other)
  Sender: FDA-Public Use
  Company Number: US-BAYER-201031600NA

PATIENT
  Sex: Female
  Weight: 49.887 kg

DRUGS (15)
  1. YAZ [Suspect]
     Indication: CONTRACEPTION
     Dosage: UNK
     Route: 048
     Dates: start: 20070313, end: 20090317
  2. CLINDAMYCIN [Concomitant]
     Dosage: UNK
     Dates: start: 20070101
  3. CETIRIZINE HCL [Concomitant]
     Dosage: UNK
     Dates: start: 20080101
  4. ANTIBIOTICS [Concomitant]
     Dosage: UNK UNK, PRN
  5. SULFONAMIDES AND TRIMETHOPRIM [Concomitant]
     Dosage: 800 MG, UNK
     Dates: start: 20080501
  6. LEVAQUIN [Concomitant]
     Dosage: UNK
     Dates: start: 20070101
  7. TRIMETHOPRIM [Concomitant]
     Dosage: 160 MG, UNK
     Dates: start: 20080501
  8. ONDANSETRON [Concomitant]
     Dosage: 80 MG, UNK
     Dates: start: 20080501
  9. NITROFURANTOIN [Concomitant]
     Dosage: UNK
     Dates: start: 20070101
  10. INDOMETHACIN [Concomitant]
     Dosage: UNK
     Dates: start: 20070101
  11. PHENAZOPYRIDINE HCL TAB [Concomitant]
     Dosage: UNK
     Dates: start: 20080101
  12. YAZ [Suspect]
     Dosage: UNK
     Dates: start: 20090618, end: 20090925
  13. FAMOTIDINE [Concomitant]
     Dosage: 20 MG, UNK
     Dates: start: 20080501
  14. YASMIN [Suspect]
     Indication: PRODUCT USED FOR UNKNOWN INDICATION
     Dosage: UNK
     Route: 048
     Dates: start: 20080101
  15. DOXYCYCLINE [Concomitant]
     Dosage: UNK
     Dates: start: 20070101

REACTIONS (16)
  - ABDOMINAL PAIN UPPER [None]
  - URINARY TRACT INFECTION [None]
  - GALLBLADDER DISORDER [None]
  - ABDOMINAL PAIN [None]
  - ABDOMINAL PAIN LOWER [None]
  - CHROMATURIA [None]
  - POLLAKIURIA [None]
  - ENURESIS [None]
  - CHOLECYSTITIS [None]
  - NAUSEA [None]
  - JAUNDICE [None]
  - CHOLELITHIASIS [None]
  - DECREASED APPETITE [None]
  - PANCREATITIS [None]
  - VAGINAL DISCHARGE [None]
  - BILE DUCT STONE [None]
